FAERS Safety Report 8575144 (Version 2)
Quarter: 2012Q4

REPORT INFORMATION
  Report Type: 
  Country: FR (occurrence: FR)
  Receive Date: 20120523
  Receipt Date: 20120903
  Transmission Date: 20130627
  Serious: Yes (Other)
  Sender: FDA-Public Use
  Company Number: PHHY2012FR043106

PATIENT
  Sex: Male

DRUGS (3)
  1. LEPONEX [Suspect]
  2. VIRAFERON [Suspect]
  3. REBETOL [Suspect]

REACTIONS (3)
  - Hepatitis C [Unknown]
  - White blood cell count decreased [Unknown]
  - Neutrophil count decreased [Unknown]
